FAERS Safety Report 5007122-5 (Version None)
Quarter: 2006Q2

REPORT INFORMATION
  Report Type: 
  Country: None (occurrence: None)
  Receive Date: 20060519
  Receipt Date: 20060510
  Transmission Date: 20061013
  Serious: Yes (Other)
  Sender: FDA-Public Use
  Company Number: GB-ABBOTT-06P-167-0332902-00

PATIENT
  Age: 57 Year
  Sex: Female

DRUGS (3)
  1. VALPROIC ACID [Suspect]
     Indication: CONVULSION
     Route: 065
  2. LAMOTRIGINE [Interacting]
     Indication: CONVULSION
     Route: 065
  3. LAMOTRIGINE [Interacting]
     Route: 065

REACTIONS (3)
  - CYANOSIS [None]
  - DRUG INTERACTION [None]
  - INTERSTITIAL LUNG DISEASE [None]
